FAERS Safety Report 20659695 (Version 1)
Quarter: 2022Q1

REPORT INFORMATION
  Report Type: Spontaneous
  Country: US (occurrence: US)
  Receive Date: 20220331
  Receipt Date: 20220331
  Transmission Date: 20220423
  Serious: No
  Sender: FDA-Public Use
  Company Number: US-PFIZER INC-2021802962

PATIENT
  Age: 55 Year
  Sex: Female
  Weight: 56.689 kg

DRUGS (13)
  1. IBRANCE [Suspect]
     Active Substance: PALBOCICLIB
     Indication: Illness
     Dosage: 125 MG, CYCLIC (DAILY FOR 3 WEEKS ON AND 1WEEK OFF)
     Route: 048
     Dates: start: 20210604
  2. IBRANCE [Suspect]
     Active Substance: PALBOCICLIB
     Indication: Breast cancer female
  3. ASCORBIC ACID [Concomitant]
     Active Substance: ASCORBIC ACID
  4. ATORVASTATIN CALCIUM [Concomitant]
     Active Substance: ATORVASTATIN CALCIUM
  5. VITAMIN B12 [Concomitant]
     Active Substance: CYANOCOBALAMIN
  6. CALCIUM CARBONATE\CHOLECALCIFEROL [Concomitant]
     Active Substance: CALCIUM CARBONATE\CHOLECALCIFEROL
  7. CHOLECALCIFEROL [Concomitant]
     Active Substance: CHOLECALCIFEROL
     Dosage: 10 UG
  8. ONDANSETRON HCL [Concomitant]
     Active Substance: ONDANSETRON HYDROCHLORIDE
  9. PANTOPRAZOLE SODIUM [Concomitant]
     Active Substance: PANTOPRAZOLE SODIUM
  10. TYLENOL [Concomitant]
     Active Substance: ACETAMINOPHEN
  11. LETROZOLE [Concomitant]
     Active Substance: LETROZOLE
  12. IBUPROFEN [Concomitant]
     Active Substance: IBUPROFEN
  13. LIDOCAINE [Concomitant]
     Active Substance: LIDOCAINE
     Dosage: 4 % ADH PATCH

REACTIONS (13)
  - Fatigue [Unknown]
  - Dyspnoea [Unknown]
  - Contusion [Unknown]
  - Throat irritation [Unknown]
  - Pain [Not Recovered/Not Resolved]
  - Dyspepsia [Unknown]
  - Dyspepsia [Unknown]
  - Nausea [Unknown]
  - Renal pain [Unknown]
  - Cough [Unknown]
  - Migraine [Unknown]
  - Muscle spasms [Recovered/Resolved]
  - Condition aggravated [Unknown]

NARRATIVE: CASE EVENT DATE: 20210601
